FAERS Safety Report 19724232 (Version 1)
Quarter: 2021Q3

REPORT INFORMATION
  Report Type: Spontaneous
  Country: DE (occurrence: DE)
  Receive Date: 20210819
  Receipt Date: 20210819
  Transmission Date: 20211014
  Serious: Yes (Hospitalization)
  Sender: FDA-Public Use
  Company Number: DE-ASTRAZENECA-2021A677059

PATIENT
  Age: 57 Year
  Sex: Male

DRUGS (11)
  1. FUROSEMID [Concomitant]
     Active Substance: FUROSEMIDE
     Dosage: 40 MG, IF NECESSARY
     Route: 048
  2. LEVOTHYROXIN?NATRIUM [Concomitant]
     Active Substance: LEVOTHYROXINE SODIUM
     Dosage: 25 MCG, 1?0?0?0
     Route: 048
  3. PREGABALIN. [Concomitant]
     Active Substance: PREGABALIN
     Dosage: 50 MG, 1?0?2?0
     Route: 048
  4. PANTOPRAZOL [Suspect]
     Active Substance: PANTOPRAZOLE SODIUM
     Dosage: 40 MG, 1?0?0?0
     Route: 048
  5. ACETYLSALICYLSURE [Concomitant]
     Active Substance: ASPIRIN
     Dosage: 100 MG, 1?0?0?0
     Route: 048
  6. ACTRAPID [Concomitant]
     Active Substance: INSULIN HUMAN
     Dosage: 1000I.E. 100I.E./ML, ACCORDING TO THE SCHEME, INJECTION / INFUSION SOLUTION
     Route: 058
  7. RAMIPRIL. [Concomitant]
     Active Substance: RAMIPRIL
     Dosage: 2.5 MG, 1?0?0?0
     Route: 048
  8. JANUMET [Concomitant]
     Active Substance: METFORMIN HYDROCHLORIDE\SITAGLIPTIN PHOSPHATE
     Dosage: 1000|50 MG, 1?0?1?0
     Route: 048
  9. JARDIANCE [Concomitant]
     Active Substance: EMPAGLIFLOZIN
     Dosage: 10 MG, 1?0?0?0
     Route: 048
  10. TICAGRELOR. [Suspect]
     Active Substance: TICAGRELOR
     Dosage: 90 MG, 1?0?1?0
     Route: 048
  11. LANTUS [Concomitant]
     Active Substance: INSULIN GLARGINE
     Dosage: 100UNITS / ML SOLUTION FOR INJECTION 10ML, 10 IE, 0?0?1?0, INJECTION / INFUSION
     Route: 058

REACTIONS (1)
  - Hepatic enzyme increased [Unknown]

NARRATIVE: CASE EVENT DATE: 20210518
